FAERS Safety Report 6013399-X (Version None)
Quarter: 2008Q4

REPORT INFORMATION
  Report Type: 
  Country: None (occurrence: None)
  Receive Date: 20081216
  Receipt Date: 20080321
  Transmission Date: 20090506
  Serious: Yes (Other)
  Sender: FDA-Public Use
  Company Number: US-WYE-H03255108

PATIENT
  Age: 39 Year
  Sex: Male
  Weight: 93.07 kg

DRUGS (4)
  1. EFFEXOR XR [Suspect]
     Indication: DEPRESSION
     Dosage: HIGHEST DOSE WAS 75 MG DAILY, ORAL ; 37.5 MG 1X PER 1 DAY, ORAL ; 37.5 MG, 1X PER 1 DAY, ORAL
     Route: 048
     Dates: start: 20050101, end: 20080304
  2. EFFEXOR XR [Suspect]
     Indication: DEPRESSION
     Dosage: HIGHEST DOSE WAS 75 MG DAILY, ORAL ; 37.5 MG 1X PER 1 DAY, ORAL ; 37.5 MG, 1X PER 1 DAY, ORAL
     Route: 048
     Dates: start: 20080305, end: 20080318
  3. EFFEXOR XR [Suspect]
     Indication: DEPRESSION
     Dosage: HIGHEST DOSE WAS 75 MG DAILY, ORAL ; 37.5 MG 1X PER 1 DAY, ORAL ; 37.5 MG, 1X PER 1 DAY, ORAL
     Route: 048
     Dates: start: 20080301
  4. PARAETHESIA(LLT: ELECTRIC SHOCK SENSATION) [Concomitant]

REACTIONS (4)
  - DRUG WITHDRAWAL SYNDROME [None]
  - HYPERACUSIS [None]
  - INFLUENZA LIKE ILLNESS [None]
  - PARAESTHESIA [None]
